FAERS Safety Report 23918964 (Version 1)
Quarter: 2024Q2

REPORT INFORMATION
  Report Type: Spontaneous
  Country: US (occurrence: US)
  Receive Date: 20240530
  Receipt Date: 20240530
  Transmission Date: 20240716
  Serious: Yes (Other)
  Sender: FDA-Public Use
  Company Number: US-TEVA-VS-3201548

PATIENT
  Age: 65 Year
  Sex: Male

DRUGS (1)
  1. LENALIDOMIDE [Suspect]
     Active Substance: LENALIDOMIDE
     Indication: Product used for unknown indication
     Dosage: TAKING LENALIDOMIDE FOR 21 DAYS AND THEN WOULD STOP TAKING IT FOR 7 DAYS AS PER STANDARD PROTOCOL
     Route: 065

REACTIONS (3)
  - Erectile dysfunction [Unknown]
  - Rash [Unknown]
  - Pruritus [Unknown]
